FAERS Safety Report 20379635 (Version 1)
Quarter: 2022Q1

REPORT INFORMATION
  Report Type: Spontaneous
  Country: US (occurrence: None)
  Receive Date: 20220126
  Receipt Date: 20220126
  Transmission Date: 20220423
  Serious: Yes (Other)
  Sender: FDA-Public Use
  Company Number: None

PATIENT
  Age: 37 Year
  Sex: Female
  Weight: 122.5 kg

DRUGS (1)
  1. SOTROVIMAB [Suspect]
     Active Substance: SOTROVIMAB
     Indication: COVID-19
     Route: 041

REACTIONS (5)
  - Infusion related reaction [None]
  - Headache [None]
  - Vomiting [None]
  - Back pain [None]
  - Hypertension [None]

NARRATIVE: CASE EVENT DATE: 20220125
